FAERS Safety Report 16850788 (Version 1)
Quarter: 2019Q3

REPORT INFORMATION
  Report Type: Spontaneous
  Country: US (occurrence: US)
  Receive Date: 20190925
  Receipt Date: 20190925
  Transmission Date: 20191005
  Serious: No
  Sender: FDA-Public Use
  Company Number: US-THERAPEUTICSMD-2019TMD01230

PATIENT
  Age: 69 Year
  Sex: Female
  Weight: 68.03 kg

DRUGS (12)
  1. IMVEXXY [Suspect]
     Active Substance: ESTRADIOL
     Indication: CYSTITIS
  2. PREDNISONE. [Concomitant]
     Active Substance: PREDNISONE
     Dosage: 5 MG, 1X/DAY
  3. PANTOPRAZOLE [Concomitant]
     Active Substance: PANTOPRAZOLE
  4. IMVEXXY [Suspect]
     Active Substance: ESTRADIOL
     Indication: VULVOVAGINAL DRYNESS
     Dosage: 1 DOSAGE UNITS, 1X/DAY BEFORE BED
     Route: 067
     Dates: start: 20190521, end: 20190522
  5. ATENOLOL. [Concomitant]
     Active Substance: ATENOLOL
  6. MYRBETRIQ [Concomitant]
     Active Substance: MIRABEGRON
  7. RANITIDINE. [Concomitant]
     Active Substance: RANITIDINE
  8. TRAZODONE [Concomitant]
     Active Substance: TRAZODONE HYDROCHLORIDE
  9. CEVIMELINE. [Concomitant]
     Active Substance: CEVIMELINE
  10. PENTOXIFYLLINE. [Concomitant]
     Active Substance: PENTOXIFYLLINE
  11. AMLODIPINE [Concomitant]
     Active Substance: AMLODIPINE BESYLATE
  12. IMVEXXY [Suspect]
     Active Substance: ESTRADIOL
     Indication: SJOGREN^S SYNDROME

REACTIONS (3)
  - Feeling abnormal [Recovered/Resolved]
  - Off label use [Recovered/Resolved]
  - Insomnia [Recovered/Resolved]

NARRATIVE: CASE EVENT DATE: 20190521
